FAERS Safety Report 6249620-2 (Version None)
Quarter: 2009Q2

REPORT INFORMATION
  Report Type: 
  Country: None (occurrence: None)
  Receive Date: 20090629
  Receipt Date: 20090623
  Transmission Date: 20091009
  Serious: Yes (Hospitalization)
  Sender: FDA-Public Use
  Company Number: US-ELI_LILLY_AND_COMPANY-US200906005531

PATIENT

DRUGS (3)
  1. HUMALOG [Suspect]
     Dates: start: 20090407
  2. LANTUS [Concomitant]
     Dates: start: 20090407
  3. PRENATAL VITAMINS /01549301/ [Concomitant]

REACTIONS (6)
  - DEHYDRATION [None]
  - DRUG EXPOSURE DURING PREGNANCY [None]
  - FEEDING DISORDER NEONATAL [None]
  - HEPATITIS VIRAL [None]
  - JAUNDICE NEONATAL [None]
  - MENINGITIS [None]
